FAERS Safety Report 24174749 (Version 2)
Quarter: 2025Q1

REPORT INFORMATION
  Report Type: Spontaneous
  Country: JP (occurrence: JP)
  Receive Date: 20240805
  Receipt Date: 20250210
  Transmission Date: 20250408
  Serious: Yes (Hospitalization)
  Sender: IPSEN BIOPHARMACEUTICALS, INC.
  Company Number: JP-SERVIER-S24008232

PATIENT
  Age: 75 Year
  Sex: Male

DRUGS (5)
  1. ONIVYDE [Suspect]
     Active Substance: IRINOTECAN HYDROCHLORIDE
     Indication: Ductal adenocarcinoma of pancreas
     Route: 042
     Dates: start: 20220208, end: 20220208
  2. ONIVYDE [Suspect]
     Active Substance: IRINOTECAN HYDROCHLORIDE
     Route: 042
     Dates: start: 2022, end: 2022
  3. ONIVYDE [Suspect]
     Active Substance: IRINOTECAN HYDROCHLORIDE
     Route: 042
     Dates: start: 20220405, end: 20220405
  4. LEVOLEUCOVORIN CALCIUM [Concomitant]
     Active Substance: LEVOLEUCOVORIN CALCIUM
     Indication: Ductal adenocarcinoma of pancreas
     Route: 042
     Dates: start: 20220208, end: 20220405
  5. FLUOROURACIL [Concomitant]
     Active Substance: FLUOROURACIL
     Indication: Ductal adenocarcinoma of pancreas
     Route: 042
     Dates: start: 20220208, end: 20220405

REACTIONS (3)
  - Pulmonary toxicity [Recovered/Resolved]
  - Off label use [Recovered/Resolved]
  - Overdose [Recovered/Resolved]

NARRATIVE: CASE EVENT DATE: 20220208
